FAERS Safety Report 22177203 (Version 1)
Quarter: 2023Q2

REPORT INFORMATION
  Report Type: Spontaneous
  Country: US (occurrence: None)
  Receive Date: 20230405
  Receipt Date: 20230405
  Transmission Date: 20230722
  Serious: No
  Sender: FDA-Public Use
  Company Number: None

PATIENT
  Age: 83 Year
  Sex: Male
  Weight: 73.8 kg

DRUGS (8)
  1. ROSUVASTATIN [Suspect]
     Active Substance: ROSUVASTATIN
     Indication: Myocardial infarction
     Dosage: OTHER QUANTITY : 1 TABLET(S);?
     Route: 048
  2. METOPROLOL [Suspect]
     Active Substance: METOPROLOL
     Indication: Myocardial infarction
     Dosage: OTHER QUANTITY : 1 TABLET(S);?FREQUENCY : EVERY DAY BEFORE NOON;?
     Route: 048
  3. LISINOPRIL [Suspect]
     Active Substance: LISINOPRIL
  4. FUROSEMIDE [Suspect]
     Active Substance: FUROSEMIDE
  5. LEVOTHYROXINE [Suspect]
     Active Substance: LEVOTHYROXINE
  6. POTASSIUM [Suspect]
     Active Substance: POTASSIUM
  7. PRASUGREL [Suspect]
     Active Substance: PRASUGREL
  8. MELATONIN [Concomitant]
     Active Substance: MELATONIN

REACTIONS (2)
  - Dyspnoea [None]
  - Dizziness [None]
